FAERS Safety Report 12728538 (Version 1)
Quarter: 2016Q3

REPORT INFORMATION
  Report Type: Spontaneous
  Country: US (occurrence: US)
  Receive Date: 20160907
  Receipt Date: 20160907
  Transmission Date: 20161109
  Serious: No
  Sender: FDA-Public Use
  Company Number: None

PATIENT
  Age: 52 Year
  Sex: Female
  Weight: 47.25 kg

DRUGS (3)
  1. IMETREX [Concomitant]
  2. TOPIRAMATE 100 MG ZYDUS PHARMACY [Suspect]
     Active Substance: TOPIRAMATE
     Indication: MIGRAINE
     Dosage: AT BEDTIME
     Route: 048
     Dates: start: 20151207, end: 20160901
  3. TOPIRAMATE 100 MG ZYDUS PHARMACY [Suspect]
     Active Substance: TOPIRAMATE
     Indication: RESTLESS LEGS SYNDROME
     Dosage: AT BEDTIME
     Route: 048
     Dates: start: 20151207, end: 20160901

REACTIONS (2)
  - Alopecia [None]
  - Onychoclasis [None]

NARRATIVE: CASE EVENT DATE: 20160907
